FAERS Safety Report 7207486-8 (Version None)
Quarter: 2010Q4

REPORT INFORMATION
  Report Type: 
  Country: None (occurrence: None)
  Receive Date: 20101220
  Receipt Date: 20101210
  Transmission Date: 20110411
  Serious: Yes (Hospitalization, Other)
  Sender: FDA-Public Use
  Company Number: 2010MA005087

PATIENT
  Age: 16 Year
  Sex: Female

DRUGS (2)
  1. CITALOPRAM HYDROBROMIDE TABLETS, 10 MG (PUREPAC)(CITALOPRAM HYDROBROMI [Suspect]
  2. ORAL CONTRACEPTIVE [Concomitant]

REACTIONS (3)
  - OVERDOSE [None]
  - PARANOIA [None]
  - SELF-INJURIOUS IDEATION [None]
